FAERS Safety Report 7347639-1 (Version None)
Quarter: 2011Q1

REPORT INFORMATION
  Report Type: 
  Country: None (occurrence: None)
  Receive Date: 20110218
  Receipt Date: 20101013
  Transmission Date: 20110831
  Serious: Yes (Hospitalization)
  Sender: FDA-Public Use
  Company Number: 2010026655

PATIENT
  Age: 57 Year
  Sex: Female
  Weight: 100 kg

DRUGS (2)
  1. HIZENTRA [Suspect]
  2. HIZENTRA [Suspect]
     Indication: IMMUNODEFICIENCY COMMON VARIABLE
     Dosage: 21 G 1X/WEEK, IN 6 SITES SUBCUTANEOUS, SUBCUTANEOUS, SUBCUTANEOUS
     Route: 058
     Dates: start: 20100923, end: 20101004

REACTIONS (4)
  - URTICARIA [None]
  - INFUSION SITE RASH [None]
  - BLOOD CREATININE INCREASED [None]
  - RENAL FAILURE ACUTE [None]
